FAERS Safety Report 6390678-8 (Version None)
Quarter: 2009Q4

REPORT INFORMATION
  Report Type: 
  Country: None (occurrence: None)
  Receive Date: 20091006
  Receipt Date: 20090925
  Transmission Date: 20100525
  Serious: Yes (Other)
  Sender: FDA-Public Use
  Company Number: US-ELI_LILLY_AND_COMPANY-US200908005433

PATIENT
  Sex: Female

DRUGS (4)
  1. FORTEO [Suspect]
     Dosage: UNK, UNK
     Dates: start: 20070101, end: 20080101
  2. FORTEO [Suspect]
     Dates: start: 20080501, end: 20080501
  3. LORAZEPAM [Concomitant]
     Dosage: 0.5 MG, EACH EVENING
  4. ADVIL LIQUI-GELS [Concomitant]
     Dosage: UNK, AS NEEDED

REACTIONS (3)
  - HYPERGAMMAGLOBULINAEMIA BENIGN MONOCLONAL [None]
  - PNEUMONIA [None]
  - PROTEIN TOTAL ABNORMAL [None]
